FAERS Safety Report 4539517-8 (Version None)
Quarter: 2004Q4

REPORT INFORMATION
  Report Type: 
  Country: None (occurrence: None)
  Receive Date: 20041222
  Receipt Date: 20041201
  Transmission Date: 20050328
  Serious: Yes (Other)
  Sender: FDA-Public Use
  Company Number: FR_041205360

PATIENT
  Age: 50 Year
  Sex: Female

DRUGS (4)
  1. ZYPREXA [Suspect]
     Indication: PSYCHOTIC DISORDER
     Dosage: 10 MG DAY
     Dates: start: 20041101, end: 20041101
  2. NORSET (MIRTAZAPINE ORIFARM) [Concomitant]
  3. MYOLASTAN (TERAZEPAM) [Concomitant]
  4. CLONAZEPAM [Concomitant]

REACTIONS (1)
  - ANGIONEUROTIC OEDEMA [None]
